FAERS Safety Report 6015883-1 (Version None)
Quarter: 2008Q4

REPORT INFORMATION
  Report Type: 
  Country: None (occurrence: None)
  Receive Date: 20081222
  Receipt Date: 20081219
  Transmission Date: 20090506
  Serious: Yes (Hospitalization)
  Sender: FDA-Public Use
  Company Number: A0761197A

PATIENT
  Age: 78 Year
  Sex: Female
  Weight: 65 kg

DRUGS (9)
  1. AVANDIA [Suspect]
     Dosage: 8MG PER DAY
     Route: 048
     Dates: start: 19990101, end: 20070101
  2. STARLIX [Concomitant]
  3. GLUCOTROL XL [Concomitant]
  4. CELEBREX [Concomitant]
  5. VIOXX [Concomitant]
  6. ALPRAZOLAM [Concomitant]
  7. ELAVIL [Concomitant]
  8. OMEPRAZOLE [Concomitant]
  9. FLURAZEPAM [Concomitant]

REACTIONS (2)
  - CARDIAC FAILURE CONGESTIVE [None]
  - CORONARY ARTERY DISEASE [None]
